FAERS Safety Report 18945590 (Version 1)
Quarter: 2021Q1

REPORT INFORMATION
  Report Type: Spontaneous
  Country: None (occurrence: DE)
  Receive Date: 20210226
  Receipt Date: 20210226
  Transmission Date: 20210420
  Serious: Yes (Other)
  Sender: FDA-Public Use
  Company Number: DE-KNIGHT THERAPEUTICS (USA) INC.-2107364

PATIENT
  Age: 72 Year
  Sex: Female

DRUGS (8)
  1. MCP [Concomitant]
     Active Substance: METOCLOPRAMIDE HYDROCHLORIDE
  2. PREGABALIN. [Concomitant]
     Active Substance: PREGABALIN
  3. AMLODIPINE [Concomitant]
     Active Substance: AMLODIPINE BESYLATE
  4. NOVAMINSULFON [Concomitant]
     Active Substance: METAMIZOLE
  5. HYDROMORPHONE HCL [Concomitant]
     Active Substance: HYDROMORPHONE HYDROCHLORIDE
  6. IMPAVIDO [Suspect]
     Active Substance: MILTEFOSINE
     Indication: CUTANEOUS LEISHMANIASIS
     Route: 048
     Dates: start: 20210104, end: 20210118
  7. LAXOBERAL [Concomitant]
     Active Substance: SODIUM PICOSULFATE
  8. VOMEX [Concomitant]
     Active Substance: DIMENHYDRINATE

REACTIONS (15)
  - Herpes simplex reactivation [Recovering/Resolving]
  - Blood bilirubin increased [Unknown]
  - Malaise [Recovered/Resolved]
  - Disease recurrence [Unknown]
  - Nausea [Recovered/Resolved]
  - Vomiting [Recovered/Resolved]
  - Aspartate aminotransferase increased [Unknown]
  - Alanine aminotransferase increased [Unknown]
  - Off label use [Unknown]
  - Anal rash [Unknown]
  - Blood creatinine increased [Recovered/Resolved]
  - Post herpetic neuralgia [Recovering/Resolving]
  - C-reactive protein increased [Recovering/Resolving]
  - Back pain [Recovering/Resolving]
  - Therapy cessation [Unknown]
